FAERS Safety Report 9023707 (Version 5)
Quarter: 2013Q3

REPORT INFORMATION
  Report Type: Report from Study
  Country: FR (occurrence: FR)
  Receive Date: 20130121
  Receipt Date: 20130905
  Transmission Date: 20140515
  Serious: Yes (Other)
  Sender: FDA-Public Use
  Company Number: FR-009507513-1301FRA007350

PATIENT
  Age: 32 Year
  Sex: Male
  Weight: 71 kg

DRUGS (13)
  1. BOCEPREVIR [Suspect]
     Indication: HEPATITIS C
     Dosage: 800 MG, TID
     Route: 048
     Dates: start: 20120918
  2. REBETOL [Suspect]
     Indication: HEPATITIS C
     Dosage: 1000 MG, QD
     Route: 048
     Dates: start: 20120822
  3. PEGASYS [Suspect]
     Indication: HEPATITIS C
     Dosage: 180 MICROGRAM, QW
     Route: 058
     Dates: start: 20120822
  4. PEGASYS [Suspect]
     Dosage: 135 MICROGRAM, QW
     Route: 058
     Dates: start: 20121018
  5. REQUIP [Concomitant]
     Indication: CONVULSION
     Dosage: 0.5 MG, QD
     Dates: start: 201110
  6. LAMOTRIGINE [Concomitant]
     Indication: CONVULSION
     Dosage: 50 MG, BID
     Dates: start: 201110
  7. PROPRANOLOL HYDROCHLORIDE [Concomitant]
     Indication: PROPHYLAXIS
     Dosage: 160 MG, QD
     Dates: start: 200510
  8. SERESTA [Concomitant]
     Indication: ANXIETY
     Dosage: 50 MG, QD
     Dates: start: 20120822
  9. DOMPERIDONE [Concomitant]
     Indication: DYSPEPSIA
     Dosage: 10 MG, TID
     Dates: start: 20120919
  10. PARACETAMOL [Concomitant]
     Indication: PYREXIA
     Dosage: 500 MG, PRN
     Dates: start: 20120822
  11. SPECIAFOLDINE [Concomitant]
     Indication: ANAEMIA PROPHYLAXIS
     Dosage: 5 MG, QD
     Dates: start: 20120822
  12. OMEPRAZOLE [Concomitant]
     Indication: GASTROOESOPHAGEAL REFLUX DISEASE
     Dosage: 20 MG, BID
     Dates: start: 20121030
  13. DEXERYL CREAM [Concomitant]
     Indication: DRY SKIN PROPHYLAXIS
     Dosage: 1 DF, QD
     Dates: start: 20120822

REACTIONS (2)
  - Gamma-glutamyltransferase increased [Recovered/Resolved]
  - Gamma-glutamyltransferase increased [Recovering/Resolving]
